FAERS Safety Report 6054292-6 (Version None)
Quarter: 2009Q1

REPORT INFORMATION
  Report Type: 
  Country: None (occurrence: None)
  Receive Date: 20090127
  Receipt Date: 20090116
  Transmission Date: 20090719
  Serious: Yes (Other)
  Sender: FDA-Public Use
  Company Number: PHHO2007MX01351

PATIENT
  Age: 70 Year
  Sex: Male

DRUGS (2)
  1. LOPRESOR [Suspect]
     Indication: HYPERTENSION
     Dosage: 100 MG, QD
     Route: 048
     Dates: start: 20020101, end: 20070101
  2. SELOKEN ZOC [Concomitant]
     Dosage: UNK, UNK
     Dates: start: 20070101

REACTIONS (1)
  - PROSTATIC DISORDER [None]
